FAERS Safety Report 7311819-1 (Version None)
Quarter: 2011Q1

REPORT INFORMATION
  Report Type: 
  Country: None (occurrence: None)
  Receive Date: 20110224
  Receipt Date: 20110223
  Transmission Date: 20110831
  Serious: Yes (Death, Other)
  Sender: FDA-Public Use
  Company Number: JP-BRISTOL-MYERS SQUIBB COMPANY-15533854

PATIENT
  Age: 6 Decade
  Sex: Male

DRUGS (2)
  1. CETUXIMAB [Suspect]
     Indication: COLON CANCER METASTATIC
     Dosage: 1 DF = 400MG/M SUP(2)FOLLOWED BY WEEKLY 250MG/M SUP(2)
  2. IRINOTECAN [Suspect]
     Indication: COLON CANCER METASTATIC

REACTIONS (4)
  - CYTOMEGALOVIRUS TEST POSITIVE [None]
  - PRINZMETAL ANGINA [None]
  - NEOPLASM MALIGNANT [None]
  - INTERSTITIAL LUNG DISEASE [None]
